FAERS Safety Report 6644165-X (Version None)
Quarter: 2010Q1

REPORT INFORMATION
  Report Type: 
  Country: None (occurrence: None)
  Receive Date: 20100322
  Receipt Date: 20100317
  Transmission Date: 20100710
  Serious: Yes (Death, Hospitalization)
  Sender: FDA-Public Use
  Company Number: PHHY2010GB00447

PATIENT
  Sex: Male

DRUGS (5)
  1. CLOZARIL [Suspect]
     Indication: SCHIZOPHRENIA
     Dosage: UNK
     Dates: start: 20080401
  2. SALBUTAMOL [Concomitant]
     Dosage: 5 MG, QD
  3. AMISULPRIDE [Concomitant]
     Dosage: 200 MG, BID
     Route: 048
  4. VALPROATE SODIUM [Concomitant]
     Dosage: 500 MG, BID
     Route: 048
  5. VALPROATE SODIUM [Concomitant]
     Dosage: 1000 MG, UNK
     Route: 048

REACTIONS (4)
  - DEATH [None]
  - MALAISE [None]
  - OBESITY [None]
  - PNEUMONIA [None]
